FAERS Safety Report 16272467 (Version 1)
Quarter: 2019Q2

REPORT INFORMATION
  Report Type: Report from Study
  Country: JP (occurrence: JP)
  Receive Date: 20190503
  Receipt Date: 20190503
  Transmission Date: 20190711
  Serious: Yes (Hospitalization)
  Sender: FDA-Public Use
  Company Number: JP-BAUSCH-BL-2019-011131

PATIENT
  Age: 86 Year
  Sex: Male
  Weight: 65 kg

DRUGS (16)
  1. CELECOX [Concomitant]
     Active Substance: CELECOXIB
     Indication: PRODUCT USED FOR UNKNOWN INDICATION
  2. TARGRETIN [Suspect]
     Active Substance: BEXAROTENE
     Indication: PERIPHERAL T-CELL LYMPHOMA UNSPECIFIED
     Route: 048
     Dates: start: 20171120, end: 20171201
  3. EPINASTINE HYDROCHLORIDE. [Concomitant]
     Active Substance: EPINASTINE HYDROCHLORIDE
     Indication: PRODUCT USED FOR UNKNOWN INDICATION
  4. THYRADIN-S [Concomitant]
     Active Substance: LEVOTHYROXINE
     Indication: PRODUCT USED FOR UNKNOWN INDICATION
  5. SEIBULE [Concomitant]
     Active Substance: MIGLITOL
     Indication: PRODUCT USED FOR UNKNOWN INDICATION
  6. ANTEBATE OINTMENT [Concomitant]
     Active Substance: BETAMETHASONE BUTYRATE PROPIONATE
     Indication: PRODUCT USED FOR UNKNOWN INDICATION
  7. AZULFIDINE [Concomitant]
     Active Substance: SULFASALAZINE
     Indication: PRODUCT USED FOR UNKNOWN INDICATION
  8. PLETAAL [Concomitant]
     Active Substance: CILOSTAZOL
     Indication: PRODUCT USED FOR UNKNOWN INDICATION
  9. MYALONE [Concomitant]
     Indication: PRODUCT USED FOR UNKNOWN INDICATION
  10. LUPRAC [Concomitant]
     Active Substance: TORSEMIDE
     Indication: PRODUCT USED FOR UNKNOWN INDICATION
  11. TARGRETIN [Suspect]
     Active Substance: BEXAROTENE
     Route: 048
     Dates: start: 20180925
  12. GLIMEPIRIDE. [Concomitant]
     Active Substance: GLIMEPIRIDE
     Indication: PRODUCT USED FOR UNKNOWN INDICATION
  13. EQUA TABLETS [Concomitant]
     Indication: PRODUCT USED FOR UNKNOWN INDICATION
  14. PREDONINE [Concomitant]
     Active Substance: PREDNISOLONE
     Indication: PRODUCT USED FOR UNKNOWN INDICATION
  15. TARGRETIN [Suspect]
     Active Substance: BEXAROTENE
     Route: 048
     Dates: start: 20171208, end: 20180924
  16. RABEPRAZOLE [Concomitant]
     Active Substance: RABEPRAZOLE
     Indication: PRODUCT USED FOR UNKNOWN INDICATION
     Route: 048

REACTIONS (6)
  - Anaemia [Unknown]
  - Hypothyroidism [Unknown]
  - Decreased appetite [Recovering/Resolving]
  - Weight decreased [Unknown]
  - Intervertebral disc protrusion [Not Recovered/Not Resolved]
  - Hypercholesterolaemia [Unknown]

NARRATIVE: CASE EVENT DATE: 20171208
